FAERS Safety Report 9006868 (Version 5)
Quarter: 2014Q2

REPORT INFORMATION
  Report Type: Spontaneous
  Country: US (occurrence: US)
  Receive Date: 20130110
  Receipt Date: 20140410
  Transmission Date: 20141212
  Serious: Yes (Hospitalization, Other)
  Sender: FDA-Public Use
  Company Number: US-009507513-1301USA002720

PATIENT
  Sex: Female
  Weight: 59.41 kg

DRUGS (7)
  1. FOSAMAX [Suspect]
     Indication: BONE LOSS
     Dosage: 70 MG, QW
     Route: 048
     Dates: start: 19990518
  2. FOSAMAX [Suspect]
     Indication: OSTEOPOROSIS PROPHYLAXIS
  3. FOSAMAX PLUS D [Suspect]
     Indication: BONE LOSS
     Dosage: 70 MG/2800 IU, QW
     Route: 048
     Dates: start: 200808, end: 200809
  4. FOSAMAX PLUS D [Suspect]
     Indication: OSTEOPOROSIS PROPHYLAXIS
  5. OMEPRAZOLE [Concomitant]
     Dosage: UNK
     Dates: start: 2004, end: 2006
  6. ZYRTEC [Concomitant]
     Indication: HYPERSENSITIVITY
     Dosage: UNK
     Dates: start: 20040804, end: 2006
  7. PREMARIN [Concomitant]

REACTIONS (25)
  - Femur fracture [Unknown]
  - Intramedullary rod insertion [Unknown]
  - Femur fracture [Unknown]
  - Medullary thyroid cancer [Unknown]
  - Foot fracture [Unknown]
  - Tooth extraction [Unknown]
  - Dental implantation [Unknown]
  - Vitamin D deficiency [Unknown]
  - Blood cholesterol increased [Unknown]
  - Insomnia [Unknown]
  - Anxiety [Unknown]
  - Rheumatoid arthritis [Unknown]
  - Osteoporosis [Unknown]
  - Bone disorder [Unknown]
  - Sinusitis [Unknown]
  - Micturition disorder [Unknown]
  - Adverse event [Unknown]
  - Adverse event [Unknown]
  - Appendicectomy [Unknown]
  - Musculoskeletal stiffness [Unknown]
  - Pain in extremity [Unknown]
  - Swelling [Unknown]
  - Nasopharyngitis [Unknown]
  - Bronchospasm [Unknown]
  - Cough [Recovering/Resolving]
